FAERS Safety Report 11680862 (Version 3)
Quarter: 2024Q2

REPORT INFORMATION
  Report Type: Spontaneous
  Country: IT (occurrence: IT)
  Receive Date: 20151029
  Receipt Date: 20240610
  Transmission Date: 20240716
  Serious: Yes (Hospitalization)
  Sender: FDA-Public Use
  Company Number: IT-AUROBINDO-AUR-APL-2015-09518

PATIENT
  Age: 67 Year
  Sex: Male

DRUGS (1)
  1. LOSARTAN [Suspect]
     Active Substance: LOSARTAN
     Indication: Hypertension
     Dosage: 50 MILLIGRAM, DAILY
     Route: 048

REACTIONS (16)
  - Malabsorption [Recovered/Resolved]
  - Gastrointestinal disorder [Recovered/Resolved]
  - Diarrhoea [Recovered/Resolved]
  - Anaemia [Recovered/Resolved]
  - Abdominal tenderness [Recovered/Resolved]
  - Weight decreased [Recovered/Resolved]
  - Gastrointestinal inflammation [Recovered/Resolved]
  - Intestinal villi atrophy [Recovered/Resolved]
  - Blood albumin decreased [Recovered/Resolved]
  - Blood potassium decreased [Recovered/Resolved]
  - Blood iron decreased [Recovered/Resolved]
  - Blood calcium decreased [Recovered/Resolved]
  - Blood phosphorus decreased [Recovered/Resolved]
  - Blood cholesterol decreased [Recovered/Resolved]
  - High density lipoprotein decreased [Recovered/Resolved]
  - Blood triglycerides decreased [Recovered/Resolved]
